FAERS Safety Report 7568201-1 (Version None)
Quarter: 2011Q2

REPORT INFORMATION
  Report Type: 
  Country: None (occurrence: None)
  Receive Date: 20110617
  Receipt Date: 20110604
  Transmission Date: 20111010
  Serious: Yes (Hospitalization)
  Sender: FDA-Public Use
  Company Number: 2011AP001154

PATIENT
  Age: 20 Year
  Sex: Female

DRUGS (1)
  1. ZONISAMIDE [Suspect]
     Dosage: 8.7 G

REACTIONS (12)
  - DRUG LEVEL INCREASED [None]
  - MENTAL STATUS CHANGES [None]
  - CHEST PAIN [None]
  - HEADACHE [None]
  - INTENTIONAL OVERDOSE [None]
  - TOXICITY TO VARIOUS AGENTS [None]
  - NAUSEA [None]
  - LEUKOCYTOSIS [None]
  - VOMITING [None]
  - DIZZINESS [None]
  - TREMOR [None]
  - VISION BLURRED [None]
